FAERS Safety Report 5372291-4 (Version None)
Quarter: 2007Q2

REPORT INFORMATION
  Report Type: 
  Country: None (occurrence: None)
  Receive Date: 20070620
  Receipt Date: 20070309
  Transmission Date: 20071010
  Serious: No
  Sender: FDA-Public Use
  Company Number: 2007RL000100

PATIENT
  Age: 43 Year
  Sex: Male

DRUGS (4)
  1. OMACOR [Suspect]
     Indication: DRUG USE FOR UNKNOWN INDICATION
     Dosage: 2 GM;QID;PO   2 GM;BID;PO
     Route: 048
     Dates: start: 20070213, end: 20070308
  2. OMACOR [Suspect]
     Indication: DRUG USE FOR UNKNOWN INDICATION
     Dosage: 2 GM;QID;PO   2 GM;BID;PO
     Route: 048
     Dates: start: 20070308
  3. ZOCOR [Concomitant]
  4. NIACIN [Concomitant]

REACTIONS (7)
  - CHEST PAIN [None]
  - CONSTIPATION [None]
  - DIZZINESS [None]
  - DRUG DISPENSING ERROR [None]
  - FLUSHING [None]
  - INSOMNIA [None]
  - PARAESTHESIA ORAL [None]
